FAERS Safety Report 10338306 (Version 1)
Quarter: 2014Q3

REPORT INFORMATION
  Report Type: Report from Study
  Country: US (occurrence: US)
  Receive Date: 20140724
  Receipt Date: 20140724
  Transmission Date: 20150326
  Serious: Yes (Other)
  Sender: FDA-Public Use
  Company Number: US-ROCHE-1438394

PATIENT
  Age: 9 Year
  Sex: Male

DRUGS (6)
  1. NOVOFINE [Concomitant]
     Active Substance: INSULIN NOS
     Dosage: 30 NEEDLES FOR 90 DAYS
     Route: 065
     Dates: end: 20140208
  2. NUTROPIN AQ [Suspect]
     Active Substance: SOMATROPIN
     Indication: GROWTH HORMONE DEFICIENCY
     Route: 058
     Dates: start: 20130301, end: 20140208
  3. NOVOFINE [Concomitant]
     Active Substance: INSULIN NOS
     Dosage: 30 NEEDLES FOR 90 DAYS
     Route: 065
     Dates: start: 20140703
  4. OMNITROPE [Concomitant]
     Active Substance: SOMATROPIN
     Dosage: 10MG/1.5ML
     Route: 058
     Dates: start: 20140208
  5. NUTROPIN AQ [Suspect]
     Active Substance: SOMATROPIN
     Route: 058
     Dates: start: 20140703
  6. INSULIN [Concomitant]
     Active Substance: INSULIN NOS
     Route: 065
     Dates: start: 20140208

REACTIONS (3)
  - Underdose [Recovered/Resolved]
  - Humerus fracture [Not Recovered/Not Resolved]
  - Ulna fracture [Not Recovered/Not Resolved]

NARRATIVE: CASE EVENT DATE: 20131105
